FAERS Safety Report 10078604 (Version 2)
Quarter: 2014Q2

REPORT INFORMATION
  Report Type: Spontaneous
  Country: JP (occurrence: JP)
  Receive Date: 20140415
  Receipt Date: 20140425
  Transmission Date: 20141212
  Serious: Yes (Death, Hospitalization)
  Sender: FDA-Public Use
  Company Number: JP-EISAI INC-E7389-04982-SPO-JP

PATIENT
  Age: 57 Year
  Sex: Female

DRUGS (8)
  1. HALAVEN [Suspect]
     Indication: BREAST CANCER METASTATIC
     Dosage: 2 MG
     Route: 041
     Dates: start: 20140116, end: 20140123
  2. GOREISAN [Concomitant]
     Indication: PLEURAL EFFUSION
     Route: 048
     Dates: start: 20140116
  3. PURSENNID [Concomitant]
     Indication: CONSTIPATION
     Route: 048
     Dates: start: 20140123
  4. AMARYL [Concomitant]
     Indication: DIABETES MELLITUS
     Route: 048
  5. DIHYDROCODEINE [Concomitant]
     Indication: COUGH
     Route: 048
     Dates: start: 20131226
  6. HOCHUEKKITO [Concomitant]
     Indication: DECREASED APPETITE
     Route: 048
     Dates: start: 20140116
  7. LASIX [Concomitant]
     Indication: PLEURAL EFFUSION
     Route: 048
     Dates: start: 20140123
  8. ALDACTONE A [Concomitant]
     Indication: PLEURAL EFFUSION
     Route: 048
     Dates: start: 20140123

REACTIONS (2)
  - Pulmonary embolism [Fatal]
  - Interstitial lung disease [Recovering/Resolving]
